FAERS Safety Report 8251498-2 (Version None)
Quarter: 2012Q2

REPORT INFORMATION
  Report Type: 
  Country: None (occurrence: None)
  Receive Date: 20120402
  Receipt Date: 20120329
  Transmission Date: 20120825
  Serious: Yes (Hospitalization)
  Sender: FDA-Public Use
  Company Number: JP-TEVA-323794USA

PATIENT
  Sex: Female
  Weight: 47 kg

DRUGS (13)
  1. MAGNESIUM OXIDE [Concomitant]
     Indication: CONSTIPATION
     Dosage: 990 MILLIGRAM;
     Dates: start: 20111212
  2. TREANDA [Suspect]
     Indication: MANTLE CELL LYMPHOMA
     Dosage: 120 MG/M2;
     Route: 042
     Dates: start: 20111215, end: 20111216
  3. LEVOFLOXACIN [Concomitant]
     Indication: PROPHYLAXIS
     Dosage: 500 MILLIGRAM;
     Dates: start: 20111212
  4. APREPITANT [Concomitant]
     Indication: PROPHYLAXIS
     Dates: start: 20111215, end: 20120107
  5. GRANISETRON HCL [Concomitant]
     Indication: PROPHYLAXIS
     Dosage: 3 MILLIGRAM;
     Dates: start: 20111215, end: 20120106
  6. DIASTASE [Concomitant]
     Indication: GASTRITIS
     Dosage: 2.01 GRAM;
  7. ALFACALCIDOL [Concomitant]
     Indication: OSTEOPOROSIS
     Dosage: .5 MICROGRAM;
  8. ACYCLOVIR [Concomitant]
     Indication: PROPHYLAXIS
     Dosage: 100 MILLIGRAM;
     Dates: start: 20111215
  9. DEXAMETHASONE SODIUM SUCCINATE [Concomitant]
     Indication: PROPHYLAXIS
     Dosage: 3 MILLIGRAM;
     Dates: start: 20111215, end: 20120106
  10. TREANDA [Suspect]
     Dosage: 120 MG/M2;
     Route: 042
     Dates: end: 20120106
  11. MECOBALAMIN [Concomitant]
     Indication: NEUROPATHY PERIPHERAL
     Dosage: 1500 MICROGRAM;
  12. ATORVASTATIN CALCIUM [Concomitant]
     Indication: HYPERLIPIDAEMIA
     Dosage: 5 MILLIGRAM;
  13. LAFUTIDINE [Concomitant]
     Indication: GASTRITIS
     Dosage: 20 MILLIGRAM;

REACTIONS (3)
  - PYREXIA [None]
  - CYTOMEGALOVIRUS INFECTION [None]
  - HYPOGAMMAGLOBULINAEMIA [None]
